FAERS Safety Report 7515457-7 (Version None)
Quarter: 2011Q2

REPORT INFORMATION
  Report Type: 
  Country: None (occurrence: None)
  Receive Date: 20110601
  Receipt Date: 20110525
  Transmission Date: 20111010
  Serious: Yes (Hospitalization)
  Sender: FDA-Public Use
  Company Number: FR-BRISTOL-MYERS SQUIBB COMPANY-15782972

PATIENT
  Age: 84 Year
  Sex: Female

DRUGS (1)
  1. FUNGIZONE [Suspect]
     Indication: FUNGAL INFECTION
     Dosage: OVER 6HRS
     Route: 042
     Dates: start: 20110320

REACTIONS (1)
  - ANAPHYLACTIC SHOCK [None]
